FAERS Safety Report 11603918 (Version 1)
Quarter: 2015Q4

REPORT INFORMATION
  Report Type: Spontaneous
  Country: US (occurrence: US)
  Receive Date: 20151007
  Receipt Date: 20151007
  Transmission Date: 20160304
  Serious: Yes (Other)
  Sender: FDA-Public Use
  Company Number: US-BAYER-2015-436727

PATIENT
  Age: 18 Year
  Sex: Female

DRUGS (1)
  1. SKYLA [Suspect]
     Active Substance: LEVONORGESTREL
     Dosage: 14 MCG/24HR, CONT
     Route: 015
     Dates: start: 20150518, end: 20150915

REACTIONS (5)
  - Abdominal discomfort [None]
  - Genital haemorrhage [None]
  - Pain [None]
  - Abdominal pain upper [None]
  - Menstruation delayed [Not Recovered/Not Resolved]
